FAERS Safety Report 8028056-8 (Version None)
Quarter: 2012Q1

REPORT INFORMATION
  Report Type: 
  Country: None (occurrence: None)
  Receive Date: 20120106
  Receipt Date: 20111226
  Transmission Date: 20120608
  Serious: Yes (Other)
  Sender: FDA-Public Use
  Company Number: JP-ROCHE-1026135

PATIENT
  Age: 6 Decade
  Sex: Male

DRUGS (1)
  1. XELODA [Suspect]
     Indication: RECTAL CANCER
     Dosage: DOSAGE IS UNCERTAIN.
     Route: 048
     Dates: start: 20100101

REACTIONS (7)
  - RENAL IMPAIRMENT [None]
  - SCLERODERMA [None]
  - PALMAR-PLANTAR ERYTHRODYSAESTHESIA SYNDROME [None]
  - HAEMOLYTIC ANAEMIA [None]
  - OEDEMA PERIPHERAL [None]
  - HYPERTENSION [None]
  - MUSCULOSKELETAL STIFFNESS [None]
